FAERS Safety Report 9284607 (Version 1)
Quarter: 2013Q2

REPORT INFORMATION
  Report Type: Spontaneous
  Country: US (occurrence: US)
  Receive Date: 20130513
  Receipt Date: 20130513
  Transmission Date: 20140414
  Serious: Yes (Hospitalization)
  Sender: FDA-Public Use
  Company Number: US-B.I. PHARMACEUTICALS,INC./RIDGEFIELD-2013-BI-12039BP

PATIENT
  Age: 85 Year
  Sex: Female

DRUGS (2)
  1. SPIRIVA [Suspect]
     Indication: CHRONIC OBSTRUCTIVE PULMONARY DISEASE
     Dosage: 18 MCG
     Route: 055
  2. VERAPIMIL [Concomitant]
     Indication: HYPERTENSION
     Route: 048

REACTIONS (4)
  - Fall [Recovered/Resolved]
  - Rib fracture [Recovered/Resolved]
  - Swelling [Not Recovered/Not Resolved]
  - Visual acuity reduced [Not Recovered/Not Resolved]
